FAERS Safety Report 5741070-8 (Version None)
Quarter: 2008Q2

REPORT INFORMATION
  Report Type: 
  Country: None (occurrence: None)
  Receive Date: 20080516
  Receipt Date: 20080506
  Transmission Date: 20081010
  Serious: Yes (Other)
  Sender: FDA-Public Use
  Company Number: US-PFIZER INC-2008039695

PATIENT
  Sex: Female
  Weight: 62.3 kg

DRUGS (8)
  1. CHANTIX [Suspect]
     Indication: SMOKING CESSATION THERAPY
     Route: 048
     Dates: start: 20080411, end: 20080506
  2. DRUG, UNSPECIFIED [Suspect]
     Indication: OSTEOARTHRITIS
     Dosage: FREQ:FREQUENCY: QWEEK
  3. DURAGESIC-100 [Concomitant]
  4. PERCOCET [Concomitant]
  5. VALIUM [Concomitant]
  6. BIOFLAVONOIDS [Concomitant]
  7. PREMARIN [Concomitant]
  8. LYRICA [Concomitant]

REACTIONS (5)
  - DIZZINESS [None]
  - FEELING ABNORMAL [None]
  - JOINT EFFUSION [None]
  - PRURITUS [None]
  - URTICARIA [None]
